FAERS Safety Report 6168438-2 (Version None)
Quarter: 2009Q2

REPORT INFORMATION
  Report Type: 
  Country: None (occurrence: None)
  Receive Date: 20090427
  Receipt Date: 20090417
  Transmission Date: 20091009
  Serious: Yes (Hospitalization)
  Sender: FDA-Public Use
  Company Number: A0748497A

PATIENT
  Age: 59 Year
  Sex: Male
  Weight: 182.3 kg

DRUGS (8)
  1. AVANDIA [Suspect]
     Dosage: 4MG TWICE PER DAY
     Route: 048
     Dates: end: 20060925
  2. ALLOPURINOL [Concomitant]
  3. PENTOXIFYLLINE [Concomitant]
  4. LANTUS [Concomitant]
  5. STARLIX [Concomitant]
  6. CLONIDINE [Concomitant]
  7. METOPROLOL SUCCINATE [Concomitant]
  8. TRICOR [Concomitant]

REACTIONS (5)
  - ACUTE MYOCARDIAL INFARCTION [None]
  - CARDIAC DISORDER [None]
  - CARDIAC FAILURE CONGESTIVE [None]
  - PULMONARY OEDEMA [None]
  - RESPIRATORY FAILURE [None]
